FAERS Safety Report 4340365-2 (Version None)
Quarter: 2004Q2

REPORT INFORMATION
  Report Type: 
  Country: None (occurrence: None)
  Receive Date: 20040412
  Receipt Date: 20040326
  Transmission Date: 20050107
  Serious: Yes (Hospitalization)
  Sender: FDA-Public Use
  Company Number: 189937

PATIENT
  Age: 61 Year
  Sex: Female

DRUGS (1)
  1. AVONEX [Suspect]
     Indication: MULTIPLE SCLEROSIS
     Dosage: 30 MCG QW IM
     Dates: start: 20030401, end: 20030901

REACTIONS (3)
  - BLADDER CANCER [None]
  - NEPHRECTOMY [None]
  - RENAL CELL CARCINOMA STAGE UNSPECIFIED [None]
